FAERS Safety Report 13729101 (Version 1)
Quarter: 2017Q3

REPORT INFORMATION
  Report Type: Spontaneous
  Country: US (occurrence: US)
  Receive Date: 20170707
  Receipt Date: 20170707
  Transmission Date: 20171127
  Serious: No
  Sender: FDA-Public Use
  Company Number: US-BAYER-2017-111207

PATIENT
  Age: 83 Year
  Sex: Male
  Weight: 72 kg

DRUGS (2)
  1. CAPSAICIN. [Concomitant]
     Active Substance: CAPSAICIN
  2. CLARITIN [Suspect]
     Active Substance: LORATADINE
     Indication: OFF LABEL USE
     Dosage: 10 MG/24HR, UNK
     Route: 048
     Dates: end: 20170607

REACTIONS (4)
  - Off label use [Unknown]
  - Therapeutic response unexpected [Unknown]
  - Ear disorder [Unknown]
  - Intentional product misuse [Unknown]
